FAERS Safety Report 4668131-9 (Version None)
Quarter: 2005Q2

REPORT INFORMATION
  Report Type: 
  Country: None (occurrence: None)
  Receive Date: 20050521
  Receipt Date: 20041221
  Transmission Date: 20051028
  Serious: Yes (Other)
  Sender: FDA-Public Use
  Company Number: PHEH2004US13519

PATIENT
  Age: 52 Year
  Sex: Female
  Weight: 144 kg

DRUGS (11)
  1. ZOMETA [Suspect]
     Indication: MULTIPLE MYELOMA
     Dosage: 4 MG, QMO
     Dates: start: 20021003, end: 20040426
  2. DEXAMETHASONE TABLETS USP (NGX) [Concomitant]
  3. THALIDOMIDE [Concomitant]
  4. DURAGESIC-100 [Concomitant]
     Dosage: 75 MCG Q72H
  5. DARVOCET-N 100 [Concomitant]
     Dosage: 100-200MG QD PRN
  6. WARFARIN SODIUM TABLETS USP (NGX) [Concomitant]
     Dosage: 1 MG, QD
  7. POTASSIUM CHLORIDE (NGX) [Concomitant]
     Dosage: 10 MEQ, QD PRN
  8. CALCIUM CITRATE [Concomitant]
     Dosage: QD
  9. MULTIVITAMIN [Concomitant]
     Dosage: QD
  10. GENTEAL [Concomitant]
  11. BENADRYL ^PFIZER WARNER-LAMBERT^ [Concomitant]
     Dosage: HS PRN

REACTIONS (26)
  - ALANINE AMINOTRANSFERASE INCREASED [None]
  - ANAEMIA [None]
  - ASPARTATE AMINOTRANSFERASE INCREASED [None]
  - ASTHENIA [None]
  - BLOOD LACTATE DEHYDROGENASE INCREASED [None]
  - BLOOD UREA DECREASED [None]
  - CHEST PAIN [None]
  - CHILLS [None]
  - DRY EYE [None]
  - DYSPNOEA [None]
  - FALL [None]
  - FATIGUE [None]
  - HAEMATOCRIT DECREASED [None]
  - HAEMOGLOBIN DECREASED [None]
  - LYMPHADENOPATHY [None]
  - MEAN CELL HAEMOGLOBIN CONCENTRATION [None]
  - MEAN CELL HAEMOGLOBIN DECREASED [None]
  - MOUTH ULCERATION [None]
  - NECROTISING GRANULOMATOUS LYMPHADENITIS [None]
  - NEUTROPHIL COUNT DECREASED [None]
  - OSTEONECROSIS [None]
  - PAIN IN JAW [None]
  - PYREXIA [None]
  - RED CELL DISTRIBUTION WIDTH INCREASED [None]
  - VOMITING [None]
  - WEIGHT DECREASED [None]
